FAERS Safety Report 9079738 (Version 9)
Quarter: 2015Q3

REPORT INFORMATION
  Report Type: Spontaneous
  Country: US (occurrence: US)
  Receive Date: 20130215
  Receipt Date: 20150723
  Transmission Date: 20151125
  Serious: Yes (Hospitalization, Other)
  Sender: FDA-Public Use
  Company Number: US-GLAXOSMITHKLINE-A1012045A

PATIENT
  Age: 59 Year
  Sex: Female

DRUGS (10)
  1. FLOLAN [Suspect]
     Active Substance: EPOPROSTENOL SODIUM
     Dosage: UNK
     Dates: start: 199910
  2. COUMADIN [Concomitant]
     Active Substance: WARFARIN SODIUM
  3. FLOLAN [Suspect]
     Active Substance: EPOPROSTENOL SODIUM
     Dosage: UNK
     Dates: start: 199910
  4. FLOLAN [Suspect]
     Active Substance: EPOPROSTENOL SODIUM
     Dosage: 36 NG/KG/MIN, CO
     Route: 042
  5. FLOLAN [Suspect]
     Active Substance: EPOPROSTENOL SODIUM
     Dosage: UNK
     Dates: start: 199910
  6. FLOLAN [Suspect]
     Active Substance: EPOPROSTENOL SODIUM
     Dosage: UNK
     Dates: start: 199910
  7. FLOLAN [Suspect]
     Active Substance: EPOPROSTENOL SODIUM
     Indication: PULMONARY ARTERIAL HYPERTENSION
     Dosage: 35 NG/KG/MIN
     Route: 042
     Dates: start: 19990913
  8. FLOLAN [Suspect]
     Active Substance: EPOPROSTENOL SODIUM
     Dosage: UNK
     Dates: start: 199910
  9. FLOLAN [Suspect]
     Active Substance: EPOPROSTENOL SODIUM
     Dosage: UNK
     Dates: start: 199910
  10. FLOLAN [Suspect]
     Active Substance: EPOPROSTENOL SODIUM
     Dosage: 36.7 NG/KG/MIN CONTINUOUSLY
     Route: 042

REACTIONS (12)
  - Gastroenteritis viral [Not Recovered/Not Resolved]
  - Device issue [Unknown]
  - Cough [Not Recovered/Not Resolved]
  - Cataract operation [Unknown]
  - Bronchitis [Unknown]
  - Catheter site pain [Unknown]
  - Urinary tract infection [Not Recovered/Not Resolved]
  - Myocardial infarction [Unknown]
  - Inflammation [Unknown]
  - Sepsis [Unknown]
  - Catheter site erythema [Not Recovered/Not Resolved]
  - Hospitalisation [Unknown]

NARRATIVE: CASE EVENT DATE: 201506
